FAERS Safety Report 6187064-2 (Version None)
Quarter: 2009Q2

REPORT INFORMATION
  Report Type: 
  Country: None (occurrence: None)
  Receive Date: 20090508
  Receipt Date: 20090428
  Transmission Date: 20091009
  Serious: Yes (Hospitalization)
  Sender: FDA-Public Use
  Company Number: OMPQ-PR-0904L-0309

PATIENT
  Age: 69 Year
  Sex: Female

DRUGS (1)
  1. OMNIPAQUE 300 [Suspect]
     Indication: DRUG USE FOR UNKNOWN INDICATION
     Dosage: 10 ML, SINGLE, DOSE, I.T.
     Route: 037

REACTIONS (12)
  - AGITATION [None]
  - APHASIA [None]
  - BACK PAIN [None]
  - CEREBRAL MICROANGIOPATHY [None]
  - CONFUSIONAL STATE [None]
  - CSF PROTEIN INCREASED [None]
  - CSF WHITE BLOOD CELL COUNT INCREASED [None]
  - DRUG HYPERSENSITIVITY [None]
  - HEADACHE [None]
  - MUSCULAR WEAKNESS [None]
  - PYREXIA [None]
  - RED BLOOD CELLS CSF POSITIVE [None]
